FAERS Safety Report 8260274-6 (Version None)
Quarter: 2012Q2

REPORT INFORMATION
  Report Type: 
  Country: None (occurrence: None)
  Receive Date: 20120404
  Receipt Date: 20120402
  Transmission Date: 20120825
  Serious: Yes (Other)
  Sender: FDA-Public Use
  Company Number: AT-ROCHE-1018719

PATIENT
  Sex: Female
  Weight: 86 kg

DRUGS (6)
  1. ACETAMINOPHEN [Suspect]
     Dates: start: 20120301, end: 20120301
  2. ACETAMINOPHEN [Suspect]
     Dates: start: 20120303, end: 20120303
  3. ACETAMINOPHEN [Suspect]
     Indication: PRODUCT USED FOR UNKNOWN INDICATION
     Route: 065
     Dates: start: 20111123, end: 20111123
  4. ACETAMINOPHEN [Suspect]
     Dates: start: 20111124, end: 20111124
  5. ACETAMINOPHEN [Suspect]
     Dates: start: 20120229, end: 20120229
  6. VISMODEGIB [Suspect]
     Indication: BASAL CELL CARCINOMA
     Dosage: DAILY, LAST DOSE PRIOR TO SAE 24 NOV 2011
     Route: 048
     Dates: start: 20111028

REACTIONS (1)
  - HEPATIC ENZYME INCREASED [None]
